FAERS Safety Report 13990509 (Version 1)
Quarter: 2017Q3

REPORT INFORMATION
  Report Type: Spontaneous
  Country: GB (occurrence: GB)
  Receive Date: 20170920
  Receipt Date: 20170920
  Transmission Date: 20171128
  Serious: Yes (Hospitalization)
  Sender: FDA-Public Use
  Company Number: GB-ACCORD-058602

PATIENT
  Age: 65 Year
  Sex: Female

DRUGS (11)
  1. CODEINE [Concomitant]
     Active Substance: CODEINE
  2. DIAZEPAM. [Concomitant]
     Active Substance: DIAZEPAM
  3. PHENYTOIN. [Concomitant]
     Active Substance: PHENYTOIN
  4. LISINOPRIL. [Concomitant]
     Active Substance: LISINOPRIL
  5. AMITRIPTYLINE [Concomitant]
     Active Substance: AMITRIPTYLINE
  6. MORPHINE [Concomitant]
     Active Substance: MORPHINE
  7. GABAPENTIN. [Concomitant]
     Active Substance: GABAPENTIN
  8. SERETIDE [Concomitant]
     Active Substance: FLUTICASONE PROPIONATE\SALMETEROL XINAFOATE
  9. TRAMADOL/TRAMADOL HYDROCHLORIDE [Suspect]
     Active Substance: TRAMADOL HYDROCHLORIDE
     Indication: BACK PAIN
     Route: 048
     Dates: start: 20170825, end: 20170829
  10. PARACETAMOL [Concomitant]
     Active Substance: ACETAMINOPHEN
  11. SALBUTAMOL [Concomitant]
     Active Substance: ALBUTEROL

REACTIONS (2)
  - Epilepsy [Recovered/Resolved]
  - Contraindicated product administered [Unknown]

NARRATIVE: CASE EVENT DATE: 20170828
